FAERS Safety Report 5928291-6 (Version None)
Quarter: 2008Q4

REPORT INFORMATION
  Report Type: 
  Country: None (occurrence: None)
  Receive Date: 20081022
  Receipt Date: 20081022
  Transmission Date: 20090506
  Serious: Yes (Death)
  Sender: FDA-Public Use
  Company Number: None

PATIENT
  Age: 36 Year
  Sex: Female
  Weight: 57.61 kg

DRUGS (2)
  1. GM-CSF BAYER PHARMACEUTICALS [Suspect]
     Indication: MALIGNANT MELANOMA
     Dosage: 125MCG EVERY DAY IM
     Route: 030
     Dates: start: 20081013, end: 20081021
  2. HD-IL2 [Suspect]
     Indication: MALIGNANT MELANOMA
     Dosage: 6000 IU EVERY 8 HOURS IV
     Route: 042
     Dates: start: 20081020, end: 20081021

REACTIONS (1)
  - CARDIO-RESPIRATORY ARREST [None]
